FAERS Safety Report 23635494 (Version 2)
Quarter: 2024Q4

REPORT INFORMATION
  Report Type: Spontaneous
  Country: JP (occurrence: JP)
  Receive Date: 20240315
  Receipt Date: 20241014
  Transmission Date: 20250114
  Serious: Yes (Hospitalization)
  Sender: AMGEN
  Company Number: JP-DSJP-DSJ-2024-110935

PATIENT
  Age: 88 Year
  Sex: Female

DRUGS (1)
  1. DENOSUMAB [Suspect]
     Active Substance: DENOSUMAB
     Indication: Osteoporosis
     Dosage: UNK, 5 TIMES IN TOTAL
     Route: 065

REACTIONS (4)
  - Mediastinum neoplasm [Not Recovered/Not Resolved]
  - Dyspnoea [Not Recovered/Not Resolved]
  - Thoracic operation [Not Recovered/Not Resolved]
  - Toothache [Not Recovered/Not Resolved]
